FAERS Safety Report 5067727-2 (Version None)
Quarter: 2006Q3

REPORT INFORMATION
  Report Type: 
  Country: None (occurrence: None)
  Receive Date: 20060706
  Receipt Date: 20060310
  Transmission Date: 20061208
  Serious: No
  Sender: FDA-Public Use
  Company Number: 200610932BWH

PATIENT
  Sex: Male

DRUGS (1)
  1. LEVITRA [Suspect]
     Dosage: 10 MG ONCE ORAL
     Route: 048
     Dates: start: 20060217

REACTIONS (2)
  - PENILE PAIN [None]
  - SWELLING [None]
